FAERS Safety Report 7514739-2 (Version None)
Quarter: 2011Q2

REPORT INFORMATION
  Report Type: 
  Country: None (occurrence: None)
  Receive Date: 20110601
  Receipt Date: 20110519
  Transmission Date: 20111010
  Serious: Yes (Death, Other)
  Sender: FDA-Public Use
  Company Number: US-BAYER-2011-040683

PATIENT
  Age: 18 Year
  Sex: Female
  Weight: 63 kg

DRUGS (9)
  1. IBUPROFEN [Concomitant]
     Indication: ARTHRALGIA
     Dosage: 1-3 PER DAY
     Dates: start: 20100922
  2. ATROPINE [Concomitant]
  3. AMIADRONE [Concomitant]
  4. EPINEPHRINE [Concomitant]
  5. YAZ [Suspect]
     Indication: ACNE
     Dosage: UNK
     Dates: start: 20090901, end: 20100901
  6. MELATONIN [Concomitant]
     Dosage: UNK
     Dates: start: 20100901
  7. NARCAN [Concomitant]
  8. YAZ [Suspect]
     Indication: MENSTRUATION IRREGULAR
  9. NORCO [Concomitant]
     Indication: ARTHRALGIA
     Dosage: UNK
     Dates: start: 20100922

REACTIONS (7)
  - THROMBOSIS [None]
  - SYNCOPE [None]
  - CARDIAC ARREST [None]
  - CONVULSION [None]
  - DYSPNOEA [None]
  - PULMONARY EMBOLISM [None]
  - CHEST PAIN [None]
